FAERS Safety Report 15803016 (Version 1)
Quarter: 2019Q1

REPORT INFORMATION
  Report Type: Spontaneous
  Country: US (occurrence: US)
  Receive Date: 20190109
  Receipt Date: 20190109
  Transmission Date: 20190417
  Serious: Yes (Hospitalization, Other)
  Sender: FDA-Public Use
  Company Number: None

PATIENT
  Age: 23 Year
  Sex: Female
  Weight: 68.85 kg

DRUGS (3)
  1. LEVORA [Concomitant]
     Active Substance: ETHINYL ESTRADIOL\LEVONORGESTREL
  2. ALBUTEROL. [Concomitant]
     Active Substance: ALBUTEROL
  3. PORTIA [Suspect]
     Active Substance: ETHINYL ESTRADIOL\LEVONORGESTREL
     Indication: CONTRACEPTION
     Route: 048
     Dates: start: 20180709, end: 20180804

REACTIONS (9)
  - Mood altered [None]
  - Vomiting [None]
  - Depression [None]
  - Headache [None]
  - Hypertension [None]
  - Dizziness [None]
  - Fatigue [None]
  - Asthenia [None]
  - Nausea [None]

NARRATIVE: CASE EVENT DATE: 20180709
